FAERS Safety Report 20780279 (Version 2)
Quarter: 2022Q2

REPORT INFORMATION
  Report Type: Report from Study
  Country: US (occurrence: US)
  Receive Date: 20220503
  Receipt Date: 20220506
  Transmission Date: 20220720
  Serious: Yes (Death, Hospitalization)
  Sender: FDA-Public Use
  Company Number: US-REGENERON PHARMACEUTICALS, INC.-2022-058462

PATIENT
  Age: 70 Year
  Sex: Female

DRUGS (6)
  1. FIANLIMAB [Suspect]
     Active Substance: FIANLIMAB
     Indication: Malignant melanoma
     Dosage: 1600 MG, Q3W
     Route: 042
     Dates: start: 20210914, end: 20220411
  2. CEMIPLIMAB [Suspect]
     Active Substance: CEMIPLIMAB
     Indication: Malignant melanoma
     Dosage: 350 MG, Q3W
     Route: 042
     Dates: start: 20210914, end: 20220411
  3. VITAMIN D3 [Concomitant]
     Active Substance: CHOLECALCIFEROL
     Indication: Hypovitaminosis
     Dosage: 50 MCG, QD
     Route: 048
     Dates: start: 20210701
  4. OXYMETAZOLINE HYDROCHLORIDE [Concomitant]
     Active Substance: OXYMETAZOLINE HYDROCHLORIDE
     Indication: Smoke sensitivity
     Dosage: 10 MG, AS NECESSARY
     Route: 048
     Dates: start: 20210801
  5. CETYLPYRIDINIUM CHLORIDE [Concomitant]
     Active Substance: CETYLPYRIDINIUM CHLORIDE
     Indication: Dry mouth
     Dosage: 5 ML, AS NECESSARY
     Route: 048
     Dates: start: 20211228
  6. XYLITOL [Concomitant]
     Active Substance: XYLITOL
     Indication: Dry mouth
     Dosage: 1 LOZENGE, AS NECESSARY
     Route: 048
     Dates: start: 20211228

REACTIONS (6)
  - Megacolon [Fatal]
  - Colitis [Fatal]
  - Escherichia bacteraemia [Not Recovered/Not Resolved]
  - Septic shock [Not Recovered/Not Resolved]
  - Acute kidney injury [Not Recovered/Not Resolved]
  - Diabetic ketoacidosis [Recovered/Resolved]

NARRATIVE: CASE EVENT DATE: 20220427
